FAERS Safety Report 5915491-4 (Version None)
Quarter: 2008Q4

REPORT INFORMATION
  Report Type: 
  Country: None (occurrence: None)
  Receive Date: 20081010
  Receipt Date: 20081001
  Transmission Date: 20090506
  Serious: Yes (Other)
  Sender: FDA-Public Use
  Company Number: GB-ELI_LILLY_AND_COMPANY-GB200810000600

PATIENT
  Age: 50 Year
  Sex: Male

DRUGS (11)
  1. FLUOXETINE [Suspect]
     Dosage: 40 MG, UNK
  2. DIHYDROCODEINE BITARTRATE INJ [Concomitant]
  3. OXYCONTIN [Interacting]
     Indication: PAIN
     Dosage: 80 MG, 2/D
     Dates: start: 20061201
  4. OXYNORM [Interacting]
     Indication: PAIN
     Dosage: 5 UNK, AS NEEDED
     Dates: start: 20061201
  5. CALCICHEW [Concomitant]
  6. ETORICOXIB [Concomitant]
  7. IBANDRONIC ACID [Concomitant]
  8. ISPAGHULA [Concomitant]
  9. OMEPRAZOLE [Concomitant]
  10. PREDNISOLONE [Concomitant]
  11. SENNA [Concomitant]

REACTIONS (5)
  - CONSTIPATION [None]
  - DRUG DEPENDENCE [None]
  - DRUG INEFFECTIVE [None]
  - DRUG INTERACTION [None]
  - HYPERHIDROSIS [None]
